FAERS Safety Report 6672415-2 (Version None)
Quarter: 2010Q2

REPORT INFORMATION
  Report Type: 
  Country: None (occurrence: None)
  Receive Date: 20100408
  Receipt Date: 20100402
  Transmission Date: 20101027
  Serious: Yes (Life-Threatening, Hospitalization, Other)
  Sender: FDA-Public Use
  Company Number: HQWYE400228AUG03

PATIENT
  Sex: Female

DRUGS (3)
  1. PREMARIN [Suspect]
  2. PROVERA [Suspect]
  3. PREMPRO [Suspect]

REACTIONS (2)
  - BREAST CANCER METASTATIC [None]
  - LUNG NEOPLASM MALIGNANT [None]
